FAERS Safety Report 6267230-8 (Version None)
Quarter: 2009Q3

REPORT INFORMATION
  Report Type: 
  Country: None (occurrence: None)
  Receive Date: 20090714
  Receipt Date: 20090702
  Transmission Date: 20100115
  Serious: Yes (Hospitalization, Disabling)
  Sender: FDA-Public Use
  Company Number: GB-PFIZER INC-2009216443

PATIENT
  Age: 36 Year

DRUGS (8)
  1. VFEND [Suspect]
     Indication: LUNG INFECTION
     Dosage: 660 MG, UNK
     Route: 042
     Dates: start: 20090515, end: 20090520
  2. VFEND [Suspect]
     Dosage: UNK
     Route: 048
     Dates: start: 20090520
  3. GENTAMYCIN SULFATE [Concomitant]
  4. VANCOMYCIN [Concomitant]
     Dosage: 2 G, 2X/DAY
     Dates: start: 20090514, end: 20090516
  5. PROPOFOL [Concomitant]
     Indication: MECHANICAL VENTILATION
     Dosage: UNK
     Route: 042
     Dates: start: 20090505
  6. ACTRAPID [Concomitant]
     Dosage: UNK
     Route: 058
     Dates: start: 20090505
  7. SALBUTAMOL [Concomitant]
     Indication: ASTHMA
     Dosage: 2 UNK, 4X/DAY
     Route: 055
     Dates: start: 20090505
  8. PARACETAMOL [Concomitant]
     Indication: BODY TEMPERATURE
     Dosage: 1 G, 4X/DAY
     Route: 042
     Dates: start: 20090505, end: 20090521

REACTIONS (2)
  - RENAL IMPAIRMENT [None]
  - RESPIRATORY TRACT INFECTION [None]
